FAERS Safety Report 13354956 (Version 1)
Quarter: 2017Q1

REPORT INFORMATION
  Report Type: Spontaneous
  Country: US (occurrence: US)
  Receive Date: 20170321
  Receipt Date: 20170321
  Transmission Date: 20170429
  Serious: No
  Sender: FDA-Public Use
  Company Number: US-BAYER-2017-053578

PATIENT
  Age: 75 Year
  Sex: Female

DRUGS (7)
  1. BETASERON [Suspect]
     Active Substance: INTERFERON BETA-1B
     Indication: MULTIPLE SCLEROSIS
     Dosage: 25 MG, QOD
     Route: 058
     Dates: start: 20170124
  2. ENALAPRIL [Concomitant]
     Active Substance: ENALAPRIL
  3. GABAPENTIN. [Concomitant]
     Active Substance: GABAPENTIN
  4. BUTALBITAL [Concomitant]
     Active Substance: BUTALBITAL
  5. VITAMIN C [Concomitant]
     Active Substance: ASCORBIC ACID
  6. OXYBUTYNIN [Concomitant]
     Active Substance: OXYBUTYNIN
  7. HYDROCODONE [Concomitant]
     Active Substance: HYDROCODONE

REACTIONS (1)
  - Drug dose omission [Recovered/Resolved]

NARRATIVE: CASE EVENT DATE: 20170320
